FAERS Safety Report 5094851-0 (Version None)
Quarter: 2006Q3

REPORT INFORMATION
  Report Type: 
  Country: None (occurrence: None)
  Receive Date: 20060901
  Receipt Date: 20060824
  Transmission Date: 20061208
  Serious: Yes (Other)
  Sender: FDA-Public Use
  Company Number: GB-JNJFOC-20060805517

PATIENT
  Sex: Female

DRUGS (4)
  1. BLINDED; INFLIXIMAB, RECOMBINANT [Suspect]
     Indication: INFLAMMATORY PAIN
     Route: 042
  2. PLACEBO [Suspect]
     Indication: ANKYLOSING SPONDYLITIS
     Route: 042
  3. CELECOXIB [Suspect]
     Indication: DRUG USE FOR UNKNOWN INDICATION
     Route: 048
  4. RANITIDINE [Suspect]
     Indication: DRUG USE FOR UNKNOWN INDICATION
     Route: 048

REACTIONS (1)
  - SKIN HYPERPIGMENTATION [None]
